FAERS Safety Report 4852586-0 (Version None)
Quarter: 2005Q4

REPORT INFORMATION
  Report Type: 
  Country: None (occurrence: None)
  Receive Date: 20051125
  Receipt Date: 20050907
  Transmission Date: 20060501
  Serious: Yes (Other)
  Sender: FDA-Public Use
  Company Number: 2004002525

PATIENT
  Age: 64 Year
  Sex: Female
  Weight: 72.5755 kg

DRUGS (4)
  1. TIKOSYN [Suspect]
     Indication: ATRIAL FIBRILLATION
     Dosage: 1000 MCG (BID), ORAL
     Route: 048
     Dates: start: 20011101
  2. DEPAKOTE [Suspect]
     Indication: ILL-DEFINED DISORDER
  3. ECOTRIN (ACETYLSALICYLIC ACID) [Concomitant]
  4. PAXIL [Concomitant]

REACTIONS (4)
  - ANXIETY [None]
  - HEADACHE [None]
  - MIGRAINE [None]
  - PALPITATIONS [None]
